FAERS Safety Report 21217583 (Version 2)
Quarter: 2022Q3

REPORT INFORMATION
  Report Type: Report from Study
  Country: MX (occurrence: MX)
  Receive Date: 20220816
  Receipt Date: 20220914
  Transmission Date: 20221027
  Serious: Yes (Other)
  Sender: FDA-Public Use
  Company Number: MX-NOVARTISPH-NVSC2021MX168201

PATIENT
  Sex: Female
  Weight: 61 kg

DRUGS (2)
  1. COSENTYX [Suspect]
     Active Substance: SECUKINUMAB
     Indication: Psoriatic arthropathy
     Dosage: 1 DOSAGE FORM (150 MG), EVERY OTHER WEEK
     Route: 030
     Dates: start: 2020
  2. COSENTYX [Suspect]
     Active Substance: SECUKINUMAB
     Dosage: 1 DOSAGE FORM, (150 MG GLW 1 ML), ONE PEN EVERY 15 DAYS, STOPPED THE DAY OF YESTERDAY 10 AUG
     Route: 058

REACTIONS (12)
  - Immunosuppression [Unknown]
  - Gastrointestinal candidiasis [Unknown]
  - Inflammation [Unknown]
  - Arthralgia [Unknown]
  - Bone pain [Unknown]
  - Oral candidiasis [Unknown]
  - Joint swelling [Unknown]
  - Vulvovaginal candidiasis [Unknown]
  - Incorrect route of product administration [Unknown]
  - Incorrect dose administered by device [Unknown]
  - Off label use [Unknown]
  - Drug ineffective [Unknown]

NARRATIVE: CASE EVENT DATE: 20200101
